FAERS Safety Report 8470407-4 (Version None)
Quarter: 2012Q2

REPORT INFORMATION
  Report Type: 
  Country: None (occurrence: None)
  Receive Date: 20120627
  Receipt Date: 20120613
  Transmission Date: 20120825
  Serious: Yes (Other)
  Sender: FDA-Public Use
  Company Number: IT-MYLANLABS-2012S1012065

PATIENT
  Age: 64 Year
  Sex: Male

DRUGS (1)
  1. AMIODARONE HYDROCHLORIDE [Suspect]
     Indication: ARRHYTHMIA SUPRAVENTRICULAR
     Dosage: 200MG DAILY
     Route: 065

REACTIONS (2)
  - NEUROPATHY PERIPHERAL [None]
  - VISUAL EVOKED POTENTIALS ABNORMAL [None]
